FAERS Safety Report 5070771-2 (Version None)
Quarter: 2006Q3

REPORT INFORMATION
  Report Type: 
  Country: None (occurrence: None)
  Receive Date: 20060804
  Receipt Date: 20060330
  Transmission Date: 20061208
  Serious: No
  Sender: FDA-Public Use
  Company Number: US-GLAXOSMITHKLINE-A0599721A

PATIENT
  Age: 54 Year
  Sex: Female

DRUGS (5)
  1. NICORETTE [Suspect]
  2. NICORETTE [Suspect]
  3. NICORETTE [Suspect]
  4. NICORETTE [Suspect]
  5. NICORETTE [Suspect]

REACTIONS (1)
  - INTENTIONAL DRUG MISUSE [None]
